FAERS Safety Report 16639224 (Version 3)
Quarter: 2019Q3

REPORT INFORMATION
  Report Type: Spontaneous
  Country: JP (occurrence: JP)
  Receive Date: 20190726
  Receipt Date: 20190917
  Transmission Date: 20191004
  Serious: Yes (Hospitalization)
  Sender: FDA-Public Use
  Company Number: PHJP2019JP009673

PATIENT
  Age: 53 Year
  Sex: Male
  Weight: 54.2 kg

DRUGS (4)
  1. PREDONINE [Suspect]
     Active Substance: PREDNISOLONE
     Indication: PRODUCT USED FOR UNKNOWN INDICATION
     Dosage: UNK
     Route: 048
  2. ILARIS [Suspect]
     Active Substance: CANAKINUMAB
     Dosage: 150 MG, UNK
     Route: 058
     Dates: start: 20190709
  3. PREDONINE [Suspect]
     Active Substance: PREDNISOLONE
     Dosage: 2 MG, ONCE DAILY (IN THE MORNING)
     Route: 048
     Dates: start: 20190715
  4. ILARIS [Suspect]
     Active Substance: CANAKINUMAB
     Indication: FAMILIAL MEDITERRANEAN FEVER
     Dosage: 150 MG, UNK
     Route: 058
     Dates: start: 20190611

REACTIONS (11)
  - Enterocolitis [Recovered/Resolved]
  - Concomitant disease aggravated [Recovered/Resolved]
  - Splenomegaly [Recovered/Resolved]
  - Pleurisy [Recovered/Resolved]
  - Pleural effusion [Unknown]
  - Pneumonia [Recovered/Resolved]
  - Computerised tomogram thorax abnormal [Unknown]
  - Pyrexia [Unknown]
  - Chest X-ray abnormal [Unknown]
  - Gastrointestinal oedema [Unknown]
  - Opportunistic infection [Recovered/Resolved]

NARRATIVE: CASE EVENT DATE: 20190715
